FAERS Safety Report 26108794 (Version 2)
Quarter: 2025Q4

REPORT INFORMATION
  Report Type: Spontaneous
  Country: US (occurrence: US)
  Receive Date: 20251201
  Receipt Date: 20251225
  Transmission Date: 20260118
  Serious: No
  Sender: DR REDDYS
  Company Number: US-DRL-USA-USA/2025/11/017700

PATIENT
  Age: 84 Year
  Sex: Male
  Weight: 90.72 kg

DRUGS (6)
  1. CLONIDINE [Suspect]
     Active Substance: CLONIDINE
     Indication: Blood pressure measurement
     Dosage: SERIAL # 8N670Z4VKB6B?TWICE IN A WEEK
     Route: 062
     Dates: start: 20251030
  2. EZETIMIBE [Concomitant]
     Active Substance: EZETIMIBE
     Indication: Product used for unknown indication
  3. VASCEPA [Concomitant]
     Active Substance: ICOSAPENT ETHYL
     Indication: Product used for unknown indication
  4. CARVEDILOL [Concomitant]
     Active Substance: CARVEDILOL
     Indication: Product used for unknown indication
  5. Hydrazaline [Concomitant]
     Indication: Product used for unknown indication
  6. VALSARTAN [Concomitant]
     Active Substance: VALSARTAN
     Indication: Product used for unknown indication

REACTIONS (4)
  - Product adhesion issue [Unknown]
  - Dyspnoea [Unknown]
  - Dizziness [Unknown]
  - Application site pruritus [Not Recovered/Not Resolved]
